FAERS Safety Report 12957393 (Version 1)
Quarter: 2016Q4

REPORT INFORMATION
  Report Type: Spontaneous
  Country: JP (occurrence: JP)
  Receive Date: 20161118
  Receipt Date: 20161118
  Transmission Date: 20170207
  Serious: Yes (Other)
  Sender: FDA-Public Use
  Company Number: JP-009507513-1611JPN005597

PATIENT
  Sex: Male

DRUGS (2)
  1. SOVALDI [Suspect]
     Active Substance: SOFOSBUVIR
     Dosage: 1 DF, DAILY, DIVIDED DOSE FREQUENCY UNKNOWN
     Route: 048
     Dates: start: 2015
  2. REBETOL [Suspect]
     Active Substance: RIBAVIRIN
     Dosage: DAILY DOSE UNKNOWN
     Route: 048
     Dates: start: 2015

REACTIONS (1)
  - Seizure [Unknown]
